FAERS Safety Report 7534630-5 (Version None)
Quarter: 2011Q2

REPORT INFORMATION
  Report Type: 
  Country: None (occurrence: None)
  Receive Date: 20110609
  Receipt Date: 20110303
  Transmission Date: 20111010
  Serious: Yes (Other)
  Sender: FDA-Public Use
  Company Number: PHHY2011US39964

PATIENT
  Sex: Male
  Weight: 131.52 kg

DRUGS (5)
  1. VIAGRA [Concomitant]
     Dosage: 50 MG, PRN
  2. PRINIVIL [Concomitant]
     Dosage: 10 MG, BID
  3. ALLOPURINOL [Concomitant]
     Dosage: 300 MG, ONCE/SINGLE
  4. SANDOSTATIN LAR [Suspect]
     Indication: ACROMEGALY
     Dosage: 20 MG, Q2 EVERY EIGHT DAY
     Route: 030
     Dates: start: 20110301
  5. POTASSIUM CITRATE [Concomitant]
     Dosage: 10 MG, TID

REACTIONS (1)
  - UPPER RESPIRATORY TRACT INFECTION [None]
